FAERS Safety Report 8826875 (Version 1)
Quarter: 2012Q4

REPORT INFORMATION
  Report Type: Report from Study
  Country: DE (occurrence: DE)
  Receive Date: 20121005
  Receipt Date: 20121005
  Transmission Date: 20130627
  Serious: Yes (Hospitalization)
  Sender: FDA-Public Use
  Company Number: DE-UCBSA-068114

PATIENT
  Age: 70 Year
  Sex: Female
  Weight: 53 kg

DRUGS (3)
  1. LEVETIRACETAM [Suspect]
     Indication: PARTIAL SEIZURES
     Dosage: DAILY DOSE: 250 MG
     Route: 048
     Dates: start: 20080422, end: 20080506
  2. SIMVASTATIN [Concomitant]
     Dosage: UNKNOWN DOSE
  3. ACETYLSALICYLIC ACID [Concomitant]
     Dosage: UNKNOWN DOSE

REACTIONS (3)
  - Gait disturbance [Recovered/Resolved]
  - Visual impairment [Recovered/Resolved]
  - Dizziness [Recovered/Resolved]
